FAERS Safety Report 6398773-4 (Version None)
Quarter: 2009Q4

REPORT INFORMATION
  Report Type: 
  Country: None (occurrence: None)
  Receive Date: 20091007
  Receipt Date: 20090923
  Transmission Date: 20100525
  Serious: Yes (Death)
  Sender: FDA-Public Use
  Company Number: MPS1-1000263

PATIENT
  Age: 2 Year
  Sex: Male

DRUGS (5)
  1. ALDURAZYME [Suspect]
     Indication: MUCOPOLYSACCHARIDOSIS
     Dates: start: 20080101, end: 20090916
  2. FLUDARABINE PHOSPHATE [Concomitant]
  3. BUSULFAN (BUSULFAN) [Concomitant]
  4. CYCLOPHOSPHAMIDE [Concomitant]
  5. THYMOGLOBULIN [Concomitant]

REACTIONS (2)
  - CAPILLARY LEAK SYNDROME [None]
  - MULTI-ORGAN FAILURE [None]
